FAERS Safety Report 16684333 (Version 1)
Quarter: 2019Q3

REPORT INFORMATION
  Report Type: Report from Study
  Country: US (occurrence: US)
  Receive Date: 20190808
  Receipt Date: 20190808
  Transmission Date: 20191004
  Serious: Yes (Death, Other)
  Sender: FDA-Public Use
  Company Number: US-MYLANLABS-2019M1073858

PATIENT

DRUGS (2)
  1. FLUDARABINE MYLAN [Suspect]
     Active Substance: FLUDARABINE PHOSPHATE
     Indication: B PRECURSOR TYPE ACUTE LEUKAEMIA
     Dosage: 30 MG/M2/D ON DAYS 2 TO 6 OF 28-DAY CYCLE
     Route: 065
  2. CYTARABINE. [Suspect]
     Active Substance: CYTARABINE
     Indication: B PRECURSOR TYPE ACUTE LEUKAEMIA
     Dosage: 2 G/M2/D ON DAYS 1 TO 6 OF 28-DAY CYCLE
     Route: 065

REACTIONS (1)
  - Multiple organ dysfunction syndrome [Fatal]
